FAERS Safety Report 19327828 (Version 1)
Quarter: 2021Q2

REPORT INFORMATION
  Report Type: Report from Study
  Country: CA (occurrence: CA)
  Receive Date: 20210528
  Receipt Date: 20210528
  Transmission Date: 20210717
  Serious: Yes (Death)
  Sender: FDA-Public Use
  Company Number: CA-CHIESI-2021CHF02718

PATIENT
  Age: 74 Year
  Sex: Male
  Weight: 71.1 kg

DRUGS (2)
  1. DEFERIPRONE [Suspect]
     Active Substance: DEFERIPRONE
     Indication: OFF LABEL USE
  2. DEFERIPRONE [Suspect]
     Active Substance: DEFERIPRONE
     Indication: SUPERFICIAL SIDEROSIS OF CENTRAL NERVOUS SYSTEM
     Dosage: 2000 MILLIGRAM, QD
     Route: 048
     Dates: start: 20180226

REACTIONS (2)
  - Off label use [Unknown]
  - Death [Fatal]

NARRATIVE: CASE EVENT DATE: 20180226
